FAERS Safety Report 4979093-9 (Version None)
Quarter: 2006Q2

REPORT INFORMATION
  Report Type: 
  Country: None (occurrence: None)
  Receive Date: 20060421
  Receipt Date: 20060410
  Transmission Date: 20061013
  Serious: Yes (Hospitalization)
  Sender: FDA-Public Use
  Company Number: FR-BRISTOL-MYERS SQUIBB COMPANY-13343223

PATIENT
  Age: 82 Year
  Sex: Female
  Weight: 45 kg

DRUGS (8)
  1. BUSPAR [Suspect]
     Route: 048
     Dates: start: 20051101
  2. BUSPAR [Suspect]
     Route: 048
     Dates: start: 20051101, end: 20060215
  3. THERALENE [Suspect]
     Dates: start: 20051201, end: 20060215
  4. KARDEGIC [Suspect]
     Dates: end: 20060215
  5. LOXEN LP [Suspect]
     Dates: end: 20060215
  6. AZOPT [Concomitant]
  7. XALACOM [Concomitant]
  8. ALPHAGAN [Concomitant]

REACTIONS (1)
  - AGRANULOCYTOSIS [None]
